FAERS Safety Report 19892948 (Version 1)
Quarter: 2021Q3

REPORT INFORMATION
  Report Type: Spontaneous
  Country: ES (occurrence: ES)
  Receive Date: 20210929
  Receipt Date: 20210929
  Transmission Date: 20211014
  Serious: Yes (Life-Threatening, Hospitalization, Other)
  Sender: FDA-Public Use
  Company Number: ES-SHILPA MEDICARE LIMITED-SML-ES-2021-01147

PATIENT
  Age: 65 Year
  Sex: Male
  Weight: 80 kg

DRUGS (8)
  1. PARACETAMOL [Concomitant]
     Active Substance: ACETAMINOPHEN
     Indication: PRODUCT USED FOR UNKNOWN INDICATION
     Dates: start: 20210809, end: 20210831
  2. POLARAMINE [Concomitant]
     Active Substance: DEXCHLORPHENIRAMINE MALEATE
     Indication: PRODUCT USED FOR UNKNOWN INDICATION
     Dates: start: 20210809, end: 20210831
  3. FUROSEMIDE. [Concomitant]
     Active Substance: FUROSEMIDE
     Indication: PRODUCT USED FOR UNKNOWN INDICATION
  4. GEMCITABINE, UNKNOWN [Suspect]
     Active Substance: GEMCITABINE
     Indication: PRODUCT USED FOR UNKNOWN INDICATION
     Dosage: 1Q2W
     Route: 042
     Dates: start: 20210809
  5. OXALIPLATIN. [Suspect]
     Active Substance: OXALIPLATIN
     Indication: PRODUCT USED FOR UNKNOWN INDICATION
     Dosage: SINGLE
     Route: 042
     Dates: start: 20210809, end: 20210809
  6. EPCORITAMAB. [Suspect]
     Active Substance: EPCORITAMAB
     Dosage: FULL DOSE: 48 MILLIGRAM, SINGLE; WEEKLY
     Route: 058
     Dates: start: 20210823
  7. EPCORITAMAB. [Suspect]
     Active Substance: EPCORITAMAB
     Indication: PRODUCT USED FOR UNKNOWN INDICATION
     Dosage: INTERMEDIATE DOSE: 0.16 MILLIGRAM, SINGLE
     Route: 058
     Dates: start: 20210816, end: 20210816
  8. EPCORITAMAB. [Suspect]
     Active Substance: EPCORITAMAB
     Dosage: PRIMING DOSE: 0.16 MILLIGRAM, SINGLE
     Route: 058
     Dates: start: 20210809, end: 20210809

REACTIONS (3)
  - Cytokine release syndrome [Recovered/Resolved]
  - Off label use [Unknown]
  - Pneumothorax [Recovered/Resolved]

NARRATIVE: CASE EVENT DATE: 20210810
